FAERS Safety Report 18881907 (Version 2)
Quarter: 2025Q3

REPORT INFORMATION
  Report Type: Spontaneous
  Country: EU (occurrence: EU)
  Receive Date: 20210211
  Receipt Date: 20250711
  Transmission Date: 20251020
  Serious: Yes (Other)
  Sender: GILEAD
  Company Number: EU-GILEAD-2021-0516893

PATIENT
  Age: 84 Year
  Sex: Male

DRUGS (12)
  1. VEKLURY [Suspect]
     Active Substance: REMDESIVIR
     Indication: COVID-19 treatment
     Dosage: 40 ML ARE ADMINISTERED ON 01-07-2021, 20 ML ARE ADMINISTERED ON 01-08-2021, 20 ML ARE ADMINISTERED O
     Route: 042
     Dates: start: 20210107, end: 20210109
  2. FINASTERIDE [Concomitant]
     Active Substance: FINASTERIDE
  3. LEVOTHYROXINE SODIUM [Concomitant]
     Active Substance: LEVOTHYROXINE SODIUM
  4. RINGER-ACETAT [Concomitant]
  5. INNOHEP [Concomitant]
     Active Substance: TINZAPARIN SODIUM
  6. LINAGLIPTIN [Concomitant]
     Active Substance: LINAGLIPTIN
  7. ACETAMINOPHEN [Concomitant]
     Active Substance: ACETAMINOPHEN
  8. CALOGEN [FATS NOS] [Concomitant]
  9. FUROSEMIDE [Concomitant]
     Active Substance: FUROSEMIDE
  10. HALDOL [Concomitant]
     Active Substance: HALOPERIDOL
  11. FINASTERID SANDOZ [Concomitant]
  12. RINGER-ACETAT BAXTER VIAFLO [Concomitant]

REACTIONS (1)
  - Chronic kidney disease [Unknown]

NARRATIVE: CASE EVENT DATE: 20210109
